FAERS Safety Report 12731355 (Version 1)
Quarter: 2016Q3

REPORT INFORMATION
  Report Type: Spontaneous
  Country: US (occurrence: US)
  Receive Date: 20160912
  Receipt Date: 20160912
  Transmission Date: 20161109
  Serious: No
  Sender: FDA-Public Use
  Company Number: US-ASTRAZENECA-2016SE72711

PATIENT
  Sex: Male

DRUGS (1)
  1. SYMBICORT [Suspect]
     Active Substance: BUDESONIDE\FORMOTEROL FUMARATE DIHYDRATE
     Indication: DYSPNOEA
     Dosage: 80/4.5 MCG TWO PUFFS TWICE A DAY
     Route: 055
     Dates: start: 201605

REACTIONS (6)
  - Weight increased [Unknown]
  - Drug ineffective [Unknown]
  - Weight decreased [Unknown]
  - Dyspnoea [Unknown]
  - Product quality issue [Unknown]
  - Intentional product misuse [Unknown]
